FAERS Safety Report 8912998 (Version 1)
Quarter: 2012Q4

REPORT INFORMATION
  Report Type: Spontaneous
  Country: US (occurrence: None)
  Receive Date: 20121114
  Receipt Date: 20121114
  Transmission Date: 20130627
  Serious: Yes (Disabling)
  Sender: FDA-Public Use
  Company Number: None

PATIENT
  Age: 78 Year
  Sex: Male
  Weight: 79.83 kg

DRUGS (1)
  1. FINASTERIDE [Suspect]
     Indication: PROSTATIC BLEEDING
     Dosage: 5 Mg. qd -daily- po
     Route: 048
     Dates: start: 20120401, end: 20121012

REACTIONS (1)
  - Haemorrhage urinary tract [None]
